FAERS Safety Report 4828805-3 (Version None)
Quarter: 2005Q4

REPORT INFORMATION
  Report Type: 
  Country: None (occurrence: None)
  Receive Date: 20051014
  Receipt Date: 20050719
  Transmission Date: 20060501
  Serious: No
  Sender: FDA-Public Use
  Company Number: 2005SP001307

PATIENT
  Age: 64 Year
  Sex: Female
  Weight: 49.8957 kg

DRUGS (1)
  1. LUNESTA [Suspect]
     Dosage: 2 MG ;HS; ORAL
     Route: 048
     Dates: start: 20050606, end: 20050101

REACTIONS (1)
  - DYSGEUSIA [None]
